FAERS Safety Report 12178943 (Version 1)
Quarter: 2016Q1

REPORT INFORMATION
  Report Type: Spontaneous
  Country: None (occurrence: None)
  Receive Date: 20160314
  Receipt Date: 20160314
  Transmission Date: 20160526
  Serious: Yes (Disabling)
  Sender: FDA-Public Use
  Company Number: None

PATIENT

DRUGS (1)
  1. ZOLPIDEM [Suspect]
     Active Substance: ZOLPIDEM\ZOLPIDEM TARTRATE
     Indication: INSOMNIA
     Dosage: 1/2 TO FULL TAB AT BEDTIME AT BEDTIME TAKEN BY MOUTH
     Route: 048

REACTIONS (1)
  - Tension headache [None]

NARRATIVE: CASE EVENT DATE: 20160313
